FAERS Safety Report 8798950 (Version 1)
Quarter: 2012Q4

REPORT INFORMATION
  Report Type: Spontaneous
  Country: US (occurrence: None)
  Receive Date: 20120918
  Receipt Date: 20120918
  Transmission Date: 20130627
  Serious: No
  Sender: FDA-Public Use
  Company Number: None

PATIENT
  Sex: Female
  Weight: 49.9 kg

DRUGS (1)
  1. PRISTIQ [Suspect]

REACTIONS (4)
  - Personality change [None]
  - Aggression [None]
  - Mania [None]
  - Abnormal behaviour [None]
